FAERS Safety Report 10620977 (Version 2)
Quarter: 2014Q4

REPORT INFORMATION
  Report Type: Spontaneous
  Country: CA (occurrence: CA)
  Receive Date: 20141203
  Receipt Date: 20141203
  Transmission Date: 20150529
  Serious: Yes (Hospitalization, Other)
  Sender: FDA-Public Use
  Company Number: CA-BAXTER-2014BAX063024

PATIENT
  Age: 47 Year
  Sex: Female

DRUGS (5)
  1. ANTICOAGULANT SODIUM CITRATE SOLUTION 4 G/100ML [Suspect]
     Active Substance: SODIUM CITRATE
     Indication: ANTICOAGULANT THERAPY
     Dosage: INJECTION AT END OF DIALYSIS
     Route: 042
  2. 0.9% SODIUM CHLORIDE INJECTION [Suspect]
     Active Substance: SODIUM CHLORIDE
     Indication: CATHETER MANAGEMENT
     Dosage: 2 BAGS A DAY
     Route: 042
  3. BICART 720 [Suspect]
     Active Substance: SODIUM BICARBONATE
     Indication: HAEMODIALYSIS
     Route: 010
  4. 0.9% SODIUM CHLORIDE INJECTION [Suspect]
     Active Substance: SODIUM CHLORIDE
     Indication: HAEMODIALYSIS
  5. HEPARIN [Suspect]
     Active Substance: HEPARIN SODIUM
     Indication: HAEMODIALYSIS
     Dosage: INITIALLY THEN 1000 IU PER HOUR
     Route: 010

REACTIONS (5)
  - Corneal abrasion [Not Recovered/Not Resolved]
  - Blood ketone body increased [Unknown]
  - Blood glucose increased [Recovered/Resolved]
  - Myocardial necrosis marker increased [Recovered/Resolved]
  - Coronary artery occlusion [Not Recovered/Not Resolved]

NARRATIVE: CASE EVENT DATE: 201410
